FAERS Safety Report 8859836 (Version 1)
Quarter: 2012Q4

REPORT INFORMATION
  Report Type: 
  Country: US (occurrence: US)
  Receive Date: 20121025
  Receipt Date: 20121025
  Transmission Date: 20130627
  Serious: No
  Sender: FDA-Public Use
  Company Number: US-ABBOTT-11P-163-0868812-00

PATIENT
  Age: 33 Year
  Sex: Female
  Weight: 60.84 kg

DRUGS (3)
  1. LUPRON DEPOT 3.75 MG [Suspect]
     Indication: PELVIC PAIN
     Dates: start: 20110909
  2. LUPRON DEPOT 3.75 MG [Suspect]
     Indication: ENDOMETRIOSIS
  3. NORETHRIDIENE [Concomitant]
     Indication: BACK DISORDER
     Dates: start: 20110909

REACTIONS (1)
  - Vomiting [Not Recovered/Not Resolved]
